FAERS Safety Report 19115351 (Version 2)
Quarter: 2021Q2

REPORT INFORMATION
  Report Type: Spontaneous
  Country: IT (occurrence: IT)
  Receive Date: 20210409
  Receipt Date: 20210609
  Transmission Date: 20210717
  Serious: Yes (Other)
  Sender: FDA-Public Use
  Company Number: IT-BAYER-2021-109686

PATIENT
  Age: 40 Year
  Sex: Female

DRUGS (1)
  1. JAYDESS [Suspect]
     Active Substance: LEVONORGESTREL
     Dosage: 14?G PER DAY, CONTINUOUSLY
     Route: 015
     Dates: start: 202103

REACTIONS (2)
  - Device breakage [None]
  - Device expulsion [Recovered/Resolved]
